FAERS Safety Report 20693746 (Version 2)
Quarter: 2025Q2

REPORT INFORMATION
  Report Type: Spontaneous
  Country: FR (occurrence: FR)
  Receive Date: 20220411
  Receipt Date: 20250610
  Transmission Date: 20250717
  Serious: Yes (Disabling)
  Sender: AUROBINDO
  Company Number: FR-PFIZER INC-202101668757

PATIENT
  Age: 57 Year
  Sex: Male

DRUGS (1)
  1. VENLAFAXINE [Suspect]
     Active Substance: VENLAFAXINE HYDROCHLORIDE
     Indication: Product used for unknown indication
     Route: 065

REACTIONS (3)
  - Palmoplantar keratoderma [Unknown]
  - Paronychia [Unknown]
  - Psoriasis [Unknown]

NARRATIVE: CASE EVENT DATE: 20040401
